FAERS Safety Report 8026785-3 (Version None)
Quarter: 2012Q1

REPORT INFORMATION
  Report Type: 
  Country: None (occurrence: None)
  Receive Date: 20120106
  Receipt Date: 20090223
  Transmission Date: 20120608
  Serious: No
  Sender: FDA-Public Use
  Company Number: 2009BI005866

PATIENT
  Sex: Female

DRUGS (4)
  1. PREDNISONE TAB [Concomitant]
  2. TYSABRI [Suspect]
     Route: 042
     Dates: start: 20080917, end: 20081022
  3. TYSABRI [Suspect]
     Route: 042
     Dates: start: 20090102
  4. TYSABRI [Suspect]
     Indication: MULTIPLE SCLEROSIS
     Route: 042
     Dates: start: 20071130, end: 20080407

REACTIONS (6)
  - ANXIETY [None]
  - MIGRAINE [None]
  - MEMORY IMPAIRMENT [None]
  - DISORIENTATION [None]
  - CYSTITIS [None]
  - WEIGHT DECREASED [None]
